FAERS Safety Report 5716271-5 (Version None)
Quarter: 2008Q2

REPORT INFORMATION
  Report Type: 
  Country: None (occurrence: None)
  Receive Date: 20080424
  Receipt Date: 20080421
  Transmission Date: 20081010
  Serious: Yes (Other)
  Sender: FDA-Public Use
  Company Number: B0505256A

PATIENT
  Age: 72 Year
  Sex: Female

DRUGS (1)
  1. SAWACILLIN [Suspect]
     Indication: DRUG USE FOR UNKNOWN INDICATION
     Route: 048
     Dates: start: 20070909

REACTIONS (5)
  - ALOPECIA [None]
  - DELIRIUM [None]
  - HEADACHE [None]
  - PRURITUS [None]
  - SKIN EXFOLIATION [None]
